FAERS Safety Report 6567991-4 (Version None)
Quarter: 2010Q1

REPORT INFORMATION
  Report Type: 
  Country: None (occurrence: None)
  Receive Date: 20100203
  Receipt Date: 20100127
  Transmission Date: 20100710
  Serious: Yes (Other)
  Sender: FDA-Public Use
  Company Number: BR-BRISTOL-MYERS SQUIBB COMPANY-14955108

PATIENT
  Age: 77 Year
  Sex: Female
  Weight: 87 kg

DRUGS (3)
  1. AVAPRO [Suspect]
     Indication: HYPERTENSION
     Dosage: 1/2 TAB IN MORNING AND 1/2 TAB AT NIGHT
     Route: 048
     Dates: start: 20020101
  2. TOBRAMYCIN [Concomitant]
     Indication: EYE ALLERGY
     Dosage: TOBRAMYCIN EYE DROPS: ROUTE -EYES
     Route: 047
     Dates: start: 20100101
  3. DEXAMETHASONE [Concomitant]
     Indication: EYE ALLERGY
     Route: 047
     Dates: start: 20100101, end: 20100101

REACTIONS (7)
  - DIZZINESS [None]
  - DYSGEUSIA [None]
  - EYE SWELLING [None]
  - LACRIMATION INCREASED [None]
  - MEDICATION ERROR [None]
  - PALPITATIONS [None]
  - WEIGHT INCREASED [None]
